FAERS Safety Report 4767626-7 (Version None)
Quarter: 2005Q3

REPORT INFORMATION
  Report Type: 
  Country: None (occurrence: None)
  Receive Date: 20050913
  Receipt Date: 20050310
  Transmission Date: 20060218
  Serious: Yes (Death, Hospitalization)
  Sender: FDA-Public Use
  Company Number: US-MERCK-0503USA02078

PATIENT
  Age: 47 Year
  Sex: Female
  Weight: 59 kg

DRUGS (32)
  1. VIOXX [Suspect]
     Indication: PAIN IN EXTREMITY
     Route: 048
     Dates: start: 20001021, end: 20030101
  2. RIFAMPIN [Concomitant]
     Route: 065
  3. SODIUM CHLORIDE [Concomitant]
     Route: 065
  4. OXYCONTIN [Concomitant]
     Route: 065
  5. ZITHROMAX [Concomitant]
     Route: 065
  6. BIAXIN [Concomitant]
     Route: 065
  7. ULTRAVATE [Concomitant]
     Route: 065
  8. HYDROCODONE BITARTRATE [Concomitant]
     Route: 065
  9. BACTROBAN [Concomitant]
     Route: 065
  10. ERYTHROMYCIN [Concomitant]
     Route: 065
  11. LEVAQUIN [Concomitant]
     Route: 065
  12. ETHAMBUTOL HYDROCHLORIDE [Concomitant]
     Route: 065
  13. PROTOPIC [Concomitant]
     Route: 065
  14. POTASSIUM CHLORIDE [Concomitant]
     Route: 065
  15. FUROSEMIDE [Concomitant]
     Route: 065
  16. GENTAMICIN [Concomitant]
     Route: 065
  17. ENULOSE [Concomitant]
     Route: 065
  18. PREDNISONE [Concomitant]
     Route: 065
  19. VENTILAN (ALBUTEROL) [Concomitant]
     Route: 065
  20. PRILOSEC [Concomitant]
     Route: 065
  21. AMITRIPTYLINE HYDROCHLORIDE [Concomitant]
     Route: 065
  22. OXYCODONE [Concomitant]
     Route: 065
  23. AMOXICILLIN [Concomitant]
     Route: 065
  24. CIPRO [Concomitant]
     Route: 065
  25. CEPHALEXIN [Concomitant]
     Route: 065
  26. NORCO [Concomitant]
     Route: 065
  27. CELEBREX [Concomitant]
     Route: 065
  28. METAPROTERENOL SULFATE [Concomitant]
     Route: 065
  29. PENTOXIFYLLINE [Concomitant]
     Route: 065
  30. AMBIEN [Concomitant]
     Route: 065
  31. HYDROCHLOROTHIAZIDE [Concomitant]
     Route: 065
  32. COUMADIN [Concomitant]
     Route: 065

REACTIONS (31)
  - ABDOMINAL PAIN [None]
  - ACUTE RESPIRATORY DISTRESS SYNDROME [None]
  - ASCITES [None]
  - ASTHMA [None]
  - BRONCHITIS [None]
  - CARDIAC FAILURE CONGESTIVE [None]
  - CARDIO-RESPIRATORY ARREST [None]
  - CEREBRAL INFARCTION [None]
  - COLLAPSE OF LUNG [None]
  - DYSPEPSIA [None]
  - DYSPNOEA [None]
  - DYSPNOEA EXERTIONAL [None]
  - EMOTIONAL DISTRESS [None]
  - GASTRIC DISORDER [None]
  - GASTROINTESTINAL HAEMORRHAGE [None]
  - HEPATIC FUNCTION ABNORMAL [None]
  - HYPOTENSION [None]
  - HYPOXIA [None]
  - MITRAL VALVE INCOMPETENCE [None]
  - MYCOBACTERIUM AVIUM COMPLEX INFECTION [None]
  - MYOCARDIAL INFARCTION [None]
  - OEDEMA PERIPHERAL [None]
  - PEPTIC ULCER [None]
  - PERICARDIAL EFFUSION [None]
  - PERIPHERAL VASCULAR DISORDER [None]
  - PULMONARY FIBROSIS [None]
  - PULMONARY HYPERTENSION [None]
  - RIGHT VENTRICULAR FAILURE [None]
  - TRICUSPID VALVE INCOMPETENCE [None]
  - VAGINAL SWELLING [None]
  - WEIGHT DECREASED [None]
